FAERS Safety Report 6547035-0 (Version None)
Quarter: 2010Q1

REPORT INFORMATION
  Report Type: 
  Country: None (occurrence: None)
  Receive Date: 20100122
  Receipt Date: 20100115
  Transmission Date: 20100710
  Serious: Yes (Hospitalization)
  Sender: FDA-Public Use
  Company Number: IT-ASTRAZENECA-2010SE02254

PATIENT
  Age: 13 Year
  Sex: Male

DRUGS (3)
  1. MERREM [Suspect]
     Indication: STAPHYLOCOCCAL INFECTION
     Route: 042
     Dates: start: 20091220, end: 20100108
  2. VANCOMICINA AP [Suspect]
     Indication: STAPHYLOCOCCAL INFECTION
     Route: 042
     Dates: start: 20091220, end: 20100107
  3. RIFADIN [Suspect]
     Indication: STAPHYLOCOCCAL INFECTION
     Route: 048
     Dates: start: 20091223, end: 20100107

REACTIONS (3)
  - DERMATITIS BULLOUS [None]
  - LIVER DISORDER [None]
  - SKIN REACTION [None]
